FAERS Safety Report 7623172-4 (Version None)
Quarter: 2011Q3

REPORT INFORMATION
  Report Type: 
  Country: None (occurrence: None)
  Receive Date: 20110719
  Receipt Date: 20110719
  Transmission Date: 20111222
  Serious: No
  Sender: FDA-Public Use
  Company Number: None

PATIENT
  Sex: Male
  Weight: 99.7913 kg

DRUGS (1)
  1. SIMVASTATIN [Suspect]
     Indication: MYOSITIS
     Dosage: 40 G DAILY PO
     Route: 048
     Dates: start: 20100419, end: 20110412

REACTIONS (2)
  - PAIN [None]
  - MYOSITIS [None]
